FAERS Safety Report 25963325 (Version 1)
Quarter: 2025Q4

REPORT INFORMATION
  Report Type: Spontaneous
  Country: US (occurrence: US)
  Receive Date: 20251027
  Receipt Date: 20251027
  Transmission Date: 20260117
  Serious: No
  Sender: TEVA
  Company Number: US-TEVA-VS-3383455

PATIENT
  Age: 65 Year
  Sex: Female

DRUGS (2)
  1. AUSTEDO XR [Suspect]
     Active Substance: DEUTETRABENAZINE
     Indication: Tardive dyskinesia
     Dosage: 4 WEEK KIT.
     Route: 065
     Dates: start: 20251003
  2. AUSTEDO [Suspect]
     Active Substance: DEUTETRABENAZINE
     Indication: Tardive dyskinesia
     Route: 065
     Dates: start: 20251003

REACTIONS (3)
  - Screaming [Unknown]
  - Dyskinesia [Unknown]
  - Anger [Unknown]

NARRATIVE: CASE EVENT DATE: 20251013
